FAERS Safety Report 7951543-5 (Version None)
Quarter: 2011Q4

REPORT INFORMATION
  Report Type: 
  Country: None (occurrence: None)
  Receive Date: 20111201
  Receipt Date: 20111121
  Transmission Date: 20120403
  Serious: Yes (Hospitalization, Other)
  Sender: FDA-Public Use
  Company Number: US-CELGENEUS-163-21880-10090128

PATIENT
  Sex: Female

DRUGS (3)
  1. VELCADE [Concomitant]
     Route: 065
     Dates: start: 20100801
  2. REVLIMID [Suspect]
     Dosage: 20 MILLIGRAM
     Route: 048
     Dates: start: 20100818
  3. REVLIMID [Suspect]
     Dosage: 5 MILLIGRAM
     Route: 048
     Dates: start: 20101101

REACTIONS (8)
  - RENAL IMPAIRMENT [None]
  - DIARRHOEA [None]
  - HERPES ZOSTER [None]
  - TOXICITY TO VARIOUS AGENTS [None]
  - PAIN [None]
  - PULMONARY THROMBOSIS [None]
  - PYREXIA [None]
  - THROMBOSIS [None]
